FAERS Safety Report 18651107 (Version 1)
Quarter: 2020Q4

REPORT INFORMATION
  Report Type: Spontaneous
  Country: UZ (occurrence: UZ)
  Receive Date: 20201223
  Receipt Date: 20201223
  Transmission Date: 20210114
  Serious: Yes (Other)
  Sender: FDA-Public Use
  Company Number: UZ-JNJFOC-20201235226

PATIENT
  Age: 24 Year
  Sex: Male
  Weight: 62 kg

DRUGS (5)
  1. SIRTURO [Suspect]
     Active Substance: BEDAQUILINE FUMARATE
     Indication: TUBERCULOSIS
     Dosage: 200 MG ONCE A DAY MON, WED, FRI
     Route: 048
     Dates: start: 20190923
  2. DELAMANID [Suspect]
     Active Substance: DELAMANID
     Indication: TUBERCULOSIS
     Dosage: TWICE PER DAY FOR 2 DAYS IN A WEEK. THAT IS ON MONDAY AND SATURDAY.
     Route: 048
     Dates: start: 20190923
  3. LINEZOLID. [Suspect]
     Active Substance: LINEZOLID
     Indication: TUBERCULOSIS
     Dosage: ONCE A DAY, FOR 2 DAYS IN A WEEK THAT  IS ON MONDAY AND SATURDAY.
     Route: 048
     Dates: start: 20190926
  4. CLOFAZIMINE [Suspect]
     Active Substance: CLOFAZIMINE
     Indication: TUBERCULOSIS
     Dosage: ONCE A DAY, FOR TWO DAYS IN A WEEK THAT IS ON MONDAY AND SATURDAY.
     Route: 048
     Dates: start: 20190926
  5. CYCLOSERINE. [Suspect]
     Active Substance: CYCLOSERINE
     Indication: TUBERCULOSIS
     Dosage: ONCE A DAY FOR 2 DAYS PER WEEK
     Route: 048
     Dates: start: 20190926

REACTIONS (1)
  - Cerebral disorder [Unknown]

NARRATIVE: CASE EVENT DATE: 202011
